FAERS Safety Report 15290127 (Version 3)
Quarter: 2018Q3

REPORT INFORMATION
  Report Type: Report from Study
  Country: IT (occurrence: IT)
  Receive Date: 20180817
  Receipt Date: 20180824
  Transmission Date: 20181010
  Serious: Yes (Life-Threatening, Hospitalization, Other)
  Sender: FDA-Public Use
  Company Number: IT-JNJFOC-20180627164

PATIENT
  Age: 13 Year
  Sex: Male
  Weight: 44 kg

DRUGS (57)
  1. DOXORUBICIN HYDROCHLORIDE. [Suspect]
     Active Substance: DOXORUBICIN HYDROCHLORIDE
     Indication: ACUTE LYMPHOCYTIC LEUKAEMIA
     Route: 042
     Dates: start: 20170123, end: 20170220
  2. GLIVEC [Suspect]
     Active Substance: IMATINIB MESYLATE
     Indication: ACUTE LYMPHOCYTIC LEUKAEMIA
     Dosage: 500 MG ALTERNATED WITH 400 MG DAILY
     Route: 048
     Dates: start: 20170102, end: 20170223
  3. ZANTAC [Concomitant]
     Active Substance: RANITIDINE HYDROCHLORIDE
     Indication: PRODUCT USED FOR UNKNOWN INDICATION
     Route: 042
     Dates: start: 20170212, end: 20170214
  4. ZANTAC [Concomitant]
     Active Substance: RANITIDINE HYDROCHLORIDE
     Indication: PRODUCT USED FOR UNKNOWN INDICATION
     Route: 042
  5. DECADRON [Concomitant]
     Active Substance: DEXAMETHASONE
     Route: 065
     Dates: start: 20170212, end: 20170214
  6. METHOTREXATE. [Concomitant]
     Active Substance: METHOTREXATE
     Route: 065
     Dates: start: 20161108
  7. METHYLPREDNISOLONE. [Concomitant]
     Active Substance: METHYLPREDNISOLONE
     Route: 065
  8. DOXORUBICIN HYDROCHLORIDE. [Suspect]
     Active Substance: DOXORUBICIN HYDROCHLORIDE
     Indication: ACUTE LYMPHOCYTIC LEUKAEMIA
     Route: 042
     Dates: start: 20160619, end: 20170619
  9. VINCRISTINE SULFATE. [Suspect]
     Active Substance: VINCRISTINE SULFATE
     Indication: ACUTE LYMPHOCYTIC LEUKAEMIA
     Route: 042
     Dates: start: 20170619, end: 20170619
  10. GLIVEC [Suspect]
     Active Substance: IMATINIB MESYLATE
     Indication: ACUTE LYMPHOCYTIC LEUKAEMIA
     Route: 048
     Dates: start: 20170102
  11. GLIVEC [Suspect]
     Active Substance: IMATINIB MESYLATE
     Indication: ACUTE LYMPHOCYTIC LEUKAEMIA
     Route: 048
     Dates: start: 20170121
  12. GLIVEC [Suspect]
     Active Substance: IMATINIB MESYLATE
     Indication: SYSTEMIC SCLERODERMA
     Route: 048
     Dates: start: 20170121
  13. CALCIUM [Concomitant]
     Active Substance: CALCIUM
     Route: 065
  14. METHOTREXATE. [Concomitant]
     Active Substance: METHOTREXATE
     Route: 065
     Dates: start: 20161011, end: 20161011
  15. ANTRA [Concomitant]
     Active Substance: OMEPRAZOLE
     Route: 042
  16. AMIKACINA [Concomitant]
     Active Substance: AMIKACIN SULFATE
     Route: 065
     Dates: start: 20170206
  17. FUCICORT [Concomitant]
     Active Substance: BETAMETHASONE VALERATE\FUSIDIC ACID
     Route: 065
  18. VINCRISTINE SULFATE. [Suspect]
     Active Substance: VINCRISTINE SULFATE
     Indication: ACUTE LYMPHOCYTIC LEUKAEMIA
     Route: 042
     Dates: start: 20170220, end: 20170220
  19. DESAMETASONE [Suspect]
     Active Substance: DEXAMETHASONE
     Indication: CHEMOTHERAPY
     Route: 048
     Dates: start: 20170605, end: 20170629
  20. DECADRON [Concomitant]
     Active Substance: DEXAMETHASONE
     Route: 065
     Dates: end: 20170211
  21. ZOFRAN [Concomitant]
     Active Substance: ONDANSETRON HYDROCHLORIDE
     Indication: PRODUCT USED FOR UNKNOWN INDICATION
     Route: 042
  22. BACTRIM [Concomitant]
     Active Substance: SULFAMETHOXAZOLE\TRIMETHOPRIM
     Route: 065
  23. VINCRISTINE SULFATE. [Suspect]
     Active Substance: VINCRISTINE SULFATE
     Indication: ACUTE LYMPHOCYTIC LEUKAEMIA
     Route: 042
     Dates: start: 20161011, end: 20161011
  24. VINCRISTINE SULFATE. [Suspect]
     Active Substance: VINCRISTINE SULFATE
     Indication: ACUTE LYMPHOCYTIC LEUKAEMIA
     Route: 042
     Dates: start: 20170123
  25. GLIVEC [Suspect]
     Active Substance: IMATINIB MESYLATE
     Indication: ACUTE LYMPHOCYTIC LEUKAEMIA
     Route: 048
     Dates: start: 20170102, end: 20170223
  26. GLIVEC [Suspect]
     Active Substance: IMATINIB MESYLATE
     Indication: SYSTEMIC SCLERODERMA
     Dosage: DOSE: 300 ^OT^
     Route: 048
     Dates: start: 20160721, end: 20161219
  27. ZANTAC [Concomitant]
     Active Substance: RANITIDINE HYDROCHLORIDE
     Indication: PRODUCT USED FOR UNKNOWN INDICATION
     Route: 042
     Dates: end: 20170211
  28. ENAPREN [Concomitant]
     Active Substance: ENALAPRIL MALEATE
     Route: 065
     Dates: start: 20170205
  29. ANTRA [Concomitant]
     Active Substance: OMEPRAZOLE
     Route: 042
  30. CEFTAZIDIME. [Concomitant]
     Active Substance: CEFTAZIDIME
     Route: 042
     Dates: start: 20170702, end: 20170708
  31. VINCRISTINE SULFATE. [Suspect]
     Active Substance: VINCRISTINE SULFATE
     Indication: ACUTE LYMPHOCYTIC LEUKAEMIA
     Route: 042
     Dates: start: 20170102, end: 20170223
  32. GLIVEC [Suspect]
     Active Substance: IMATINIB MESYLATE
     Indication: SYSTEMIC SCLERODERMA
     Route: 048
     Dates: start: 20170102, end: 20170223
  33. GLIVEC [Suspect]
     Active Substance: IMATINIB MESYLATE
     Indication: ACUTE LYMPHOCYTIC LEUKAEMIA
     Dosage: DOSE: 300 ^OT^
     Route: 048
     Dates: start: 20160721, end: 20161219
  34. GLIVEC [Suspect]
     Active Substance: IMATINIB MESYLATE
     Indication: SYSTEMIC SCLERODERMA
     Route: 048
  35. RANITIDINE. [Concomitant]
     Active Substance: RANITIDINE
     Indication: PRODUCT USED FOR UNKNOWN INDICATION
     Route: 065
  36. POTASSIUM CHLORIDE. [Concomitant]
     Active Substance: POTASSIUM CHLORIDE
     Route: 065
  37. DIFLUCAN [Concomitant]
     Active Substance: FLUCONAZOLE
     Route: 042
  38. MYELOSTIM [Concomitant]
     Route: 065
  39. ERWINIASE [Concomitant]
     Active Substance: ASPARAGINASE
     Route: 065
  40. ZOVIRAX [Concomitant]
     Active Substance: ACYCLOVIR
     Route: 042
  41. L?ASPARAGINASE [Suspect]
     Active Substance: ASPARAGINASE
     Indication: ACUTE LYMPHOCYTIC LEUKAEMIA
     Route: 042
     Dates: start: 20170126, end: 20170202
  42. CALCIUM [Concomitant]
     Active Substance: CALCIUM
     Route: 065
     Dates: start: 20170210
  43. PARACETAMOL [Concomitant]
     Active Substance: ACETAMINOPHEN
     Route: 042
     Dates: start: 20170204
  44. RANITIDINE. [Concomitant]
     Active Substance: RANITIDINE
     Indication: PRODUCT USED FOR UNKNOWN INDICATION
     Route: 065
  45. BACTRIM [Concomitant]
     Active Substance: SULFAMETHOXAZOLE\TRIMETHOPRIM
     Route: 065
  46. DOXORUBICIN HYDROCHLORIDE. [Suspect]
     Active Substance: DOXORUBICIN HYDROCHLORIDE
     Indication: ACUTE LYMPHOCYTIC LEUKAEMIA
     Route: 042
     Dates: start: 20170220, end: 20170220
  47. GLIVEC [Suspect]
     Active Substance: IMATINIB MESYLATE
     Indication: SYSTEMIC SCLERODERMA
     Route: 048
     Dates: start: 20170102
  48. GLIVEC [Suspect]
     Active Substance: IMATINIB MESYLATE
     Indication: SYSTEMIC SCLERODERMA
     Dosage: 500 MG ALTERNATED WITH 400 MG DAILY
     Route: 048
     Dates: start: 20170102, end: 20170223
  49. GLIVEC [Suspect]
     Active Substance: IMATINIB MESYLATE
     Indication: ACUTE LYMPHOCYTIC LEUKAEMIA
     Route: 048
  50. ZANTAC [Concomitant]
     Active Substance: RANITIDINE HYDROCHLORIDE
     Indication: PRODUCT USED FOR UNKNOWN INDICATION
     Route: 042
  51. MYCOSTATIN [Concomitant]
     Active Substance: NYSTATIN
     Route: 065
  52. PEGASPARGASE [Concomitant]
     Active Substance: PEGASPARGASE
     Route: 065
  53. VINCRISTINE SULFATE. [Suspect]
     Active Substance: VINCRISTINE SULFATE
     Indication: ACUTE LYMPHOCYTIC LEUKAEMIA
     Route: 042
     Dates: start: 20161016, end: 20161016
  54. METHOTREXATE. [Concomitant]
     Active Substance: METHOTREXATE
     Route: 037
     Dates: start: 20161011, end: 20161011
  55. PARACETAMOL [Concomitant]
     Active Substance: ACETAMINOPHEN
     Route: 042
  56. POTASSIUM CHLORIDE. [Concomitant]
     Active Substance: POTASSIUM CHLORIDE
     Route: 041
  57. ETOPOSIDE. [Concomitant]
     Active Substance: ETOPOSIDE
     Route: 065

REACTIONS (21)
  - Pulmonary mass [Unknown]
  - Catarrh [Recovering/Resolving]
  - Bone marrow failure [Recovered/Resolved]
  - Vomiting [Recovered/Resolved]
  - Anaemia [Recovering/Resolving]
  - Herpes virus infection [Unknown]
  - Sinus tachycardia [Recovered/Resolved]
  - Pyrexia [Recovered/Resolved]
  - Leukopenia [Recovering/Resolving]
  - Lipase increased [Recovered/Resolved]
  - Off label use [Unknown]
  - Hyponatraemia [Recovered/Resolved]
  - Neutropenia [Recovering/Resolving]
  - Arthralgia [Not Recovered/Not Resolved]
  - Asthenia [Recovered/Resolved]
  - Bronchitis [Unknown]
  - Hypotension [Recovered/Resolved]
  - Cytogenetic analysis abnormal [Not Recovered/Not Resolved]
  - Cough [Recovering/Resolving]
  - Product use in unapproved indication [Unknown]
  - Pneumonia [Recovered/Resolved]

NARRATIVE: CASE EVENT DATE: 20170204
